FAERS Safety Report 22603971 (Version 1)
Quarter: 2023Q2

REPORT INFORMATION
  Report Type: Spontaneous
  Country: NO (occurrence: None)
  Receive Date: 20230615
  Receipt Date: 20230615
  Transmission Date: 20230722
  Serious: Yes (Other)
  Sender: FDA-Public Use
  Company Number: NO-ROCHE-3369374

PATIENT
  Age: 83 Year
  Sex: Female

DRUGS (2)
  1. MABTHERA [Suspect]
     Active Substance: RITUXIMAB
     Indication: Chronic lymphocytic leukaemia
     Dosage: RECEIVED IN TWO ROUNDS IN 2021 AND NOVEMBER 2022 - UNTIL MARCH 2023
     Route: 065
  2. MABTHERA [Suspect]
     Active Substance: RITUXIMAB
     Route: 065
     Dates: start: 202211, end: 202303

REACTIONS (2)
  - Blister [Unknown]
  - Vision blurred [Unknown]
